FAERS Safety Report 14238194 (Version 1)
Quarter: 2017Q4

REPORT INFORMATION
  Report Type: Report from Study
  Country: None (occurrence: BR)
  Receive Date: 20171130
  Receipt Date: 20171130
  Transmission Date: 20180321
  Serious: Yes (Other)
  Sender: FDA-Public Use
  Company Number: BR-ABBVIE-17K-020-2174100-00

PATIENT
  Sex: Female
  Weight: 80 kg

DRUGS (3)
  1. HUMIRA [Suspect]
     Active Substance: ADALIMUMAB
     Indication: PRODUCT USED FOR UNKNOWN INDICATION
     Route: 058
     Dates: start: 20160328, end: 20170907
  2. HUMIRA [Suspect]
     Active Substance: ADALIMUMAB
     Route: 058
     Dates: start: 20170929
  3. RINOSORO [Concomitant]
     Indication: NASAL DISORDER

REACTIONS (3)
  - Lacrimal duct neoplasm [Recovering/Resolving]
  - Pain in extremity [Recovered/Resolved]
  - Dacryostenosis acquired [Recovering/Resolving]
